FAERS Safety Report 4360659-4 (Version None)
Quarter: 2004Q2

REPORT INFORMATION
  Report Type: 
  Country: None (occurrence: None)
  Receive Date: 20040514
  Receipt Date: 20040505
  Transmission Date: 20050107
  Serious: Yes (Other)
  Sender: FDA-Public Use
  Company Number: GB-JNJFOC-20040500703

PATIENT
  Age: 64 Year
  Sex: Male

DRUGS (7)
  1. REMICADE (INFLIXIMAB, RECOMBINANT) LYOPHILIZED POWDER [Suspect]
     Indication: RHEUMATOID ARTHRITIS
     Dosage: 385 KG, INTRAVENOUS
     Route: 042
     Dates: start: 20030228, end: 20031107
  2. CALCICHEW (CALCIUM CARBONATE) [Concomitant]
  3. METHOTREXATE [Concomitant]
  4. ACETAMINOPHEN [Concomitant]
  5. FOLIC ACID [Concomitant]
  6. FROBEN (FLURBIPROFEN) [Concomitant]
  7. PREDNISOLONE [Concomitant]

REACTIONS (2)
  - GAMMOPATHY [None]
  - MULTIPLE MYELOMA [None]
